FAERS Safety Report 4375441-1 (Version None)
Quarter: 2004Q2

REPORT INFORMATION
  Report Type: 
  Country: None (occurrence: None)
  Receive Date: 20040607
  Receipt Date: 20040602
  Transmission Date: 20050107
  Serious: Yes (Death, Other)
  Sender: FDA-Public Use
  Company Number: 2004198986US

PATIENT
  Age: 53 Year
  Sex: Male
  Weight: 66 kg

DRUGS (5)
  1. CELEBREX [Suspect]
     Dosage: 400 MG, BID, ORAL
     Route: 048
     Dates: start: 20020101, end: 20031101
  2. PRILOSEC [Concomitant]
  3. PAXIL [Concomitant]
  4. RITALIN [Concomitant]
  5. DOMPERIDONE (DOMPERIDONE) [Concomitant]

REACTIONS (5)
  - ALANINE AMINOTRANSFERASE INCREASED [None]
  - ASPARTATE AMINOTRANSFERASE INCREASED [None]
  - BLOOD ALKALINE PHOSPHATASE INCREASED [None]
  - OESOPHAGEAL CARCINOMA [None]
  - RECURRENT CANCER [None]
